FAERS Safety Report 10867288 (Version 3)
Quarter: 2015Q2

REPORT INFORMATION
  Report Type: Spontaneous
  Country: CA (occurrence: CA)
  Receive Date: 20150225
  Receipt Date: 20150406
  Transmission Date: 20150821
  Serious: Yes (Life-Threatening, Hospitalization)
  Sender: FDA-Public Use
  Company Number: CA-SA-2015SA021193

PATIENT
  Sex: Female

DRUGS (1)
  1. ALLERJECT [Suspect]
     Active Substance: EPINEPHRINE
     Indication: HYPERSENSITIVITY
     Dosage: DOSE:0.1 MILLIGRAM(S)/MILLILITRE
     Route: 065
     Dates: start: 20150215, end: 20150215

REACTIONS (2)
  - Drug ineffective [Unknown]
  - Anaphylactic reaction [Recovered/Resolved]

NARRATIVE: CASE EVENT DATE: 20150215
